FAERS Safety Report 8845963 (Version 1)
Quarter: 2012Q4

REPORT INFORMATION
  Report Type: 
  Country: US (occurrence: US)
  Receive Date: 20121017
  Receipt Date: 20121017
  Transmission Date: 20130627
  Serious: Yes (Hospitalization, Other)
  Sender: FDA-Public Use
  Company Number: US-ASTRAZENECA-2012SE77225

PATIENT
  Age: 68 Year
  Sex: Female
  Weight: 67.1 kg

DRUGS (13)
  1. NEXIUM [Suspect]
     Indication: GASTROOESOPHAGEAL REFLUX DISEASE
     Route: 048
     Dates: start: 2001, end: 2002
  2. NEXIUM [Suspect]
     Indication: GASTROOESOPHAGEAL REFLUX DISEASE
     Route: 048
     Dates: start: 2002, end: 2010
  3. NEXIUM [Suspect]
     Indication: GASTROOESOPHAGEAL REFLUX DISEASE
     Route: 048
     Dates: start: 2010
  4. NEXIUM [Suspect]
     Indication: GASTROOESOPHAGEAL REFLUX DISEASE
     Route: 048
     Dates: start: 201205
  5. COUMADIN [Suspect]
     Indication: THROMBOSIS
     Route: 048
     Dates: start: 2010
  6. COUMADIN [Suspect]
     Indication: THROMBOSIS
     Route: 048
     Dates: start: 2010
  7. XANAX [Concomitant]
     Indication: PANIC ATTACK
     Route: 048
  8. SYNTHROID [Concomitant]
     Indication: THYROID DISORDER
     Route: 048
  9. POLYETHYLINE GLYCOL [Concomitant]
     Indication: LAXATIVE SUPPORTIVE CARE
     Dosage: 3350 THREE TIMES A DAY
     Route: 048
  10. CALCIUM [Concomitant]
     Indication: MINERAL SUPPLEMENTATION
     Dosage: Daily
     Route: 048
  11. VIT D [Concomitant]
     Indication: VITAMIN SUPPLEMENTATION
     Dosage: Daily
     Route: 048
  12. ALBUTEROL INHALER [Concomitant]
     Dosage: As required
     Route: 055
  13. PREVACID [Concomitant]
     Dosage: At night

REACTIONS (10)
  - Deep vein thrombosis [Unknown]
  - Thrombosis [Recovering/Resolving]
  - Peripheral artery thrombosis [Recovering/Resolving]
  - Blood viscosity increased [Unknown]
  - Insomnia [Not Recovered/Not Resolved]
  - Aphagia [Not Recovered/Not Resolved]
  - Sinus congestion [Not Recovered/Not Resolved]
  - Sinusitis [Unknown]
  - Incorrect dose administered [Unknown]
  - Off label use [Unknown]
